FAERS Safety Report 5316415-3 (Version None)
Quarter: 2007Q2

REPORT INFORMATION
  Report Type: 
  Country: None (occurrence: None)
  Receive Date: 20070504
  Receipt Date: 20070424
  Transmission Date: 20071010
  Serious: Yes (Death, Hospitalization)
  Sender: FDA-Public Use
  Company Number: US-AVENTIS-200312993US

PATIENT
  Sex: Male
  Weight: 70 kg

DRUGS (6)
  1. TAXOTERE [Suspect]
     Indication: PROSTATE CANCER
     Route: 042
     Dates: start: 20020925, end: 20030304
  2. PRAVACHOL [Concomitant]
     Route: 048
     Dates: start: 19990101, end: 20030517
  3. PREVACID [Concomitant]
     Route: 048
  4. VITAMIN CAP [Concomitant]
     Dosage: DOSE: 1 TAB
     Route: 048
  5. LASIX [Concomitant]
     Route: 048
  6. PREDNISONE [Concomitant]
     Route: 048
     Dates: start: 20030301

REACTIONS (7)
  - HYPOTENSION [None]
  - INTERSTITIAL LUNG DISEASE [None]
  - LIVER FUNCTION TEST ABNORMAL [None]
  - NAUSEA [None]
  - PLEURAL EFFUSION [None]
  - PULMONARY FIBROSIS [None]
  - PYREXIA [None]
